FAERS Safety Report 7060512-1 (Version None)
Quarter: 2010Q4

REPORT INFORMATION
  Report Type: 
  Country: None (occurrence: None)
  Receive Date: 20101025
  Receipt Date: 20101013
  Transmission Date: 20110411
  Serious: Yes (Other)
  Sender: FDA-Public Use
  Company Number: CA-PFIZER INC-2010130043

PATIENT
  Age: 78 Year
  Sex: Female

DRUGS (14)
  1. LYRICA [Suspect]
     Dosage: 50 MG, 2X/DAY
     Dates: start: 20100926, end: 20101005
  2. LYRICA [Suspect]
     Dosage: 25 MG, 2X/DAY
     Dates: start: 20101006
  3. METOPROLOL [Concomitant]
     Dosage: 75 MG, 2X/DAY
  4. ISOSORBIDE MONONITRATE [Concomitant]
     Dosage: 120 MG, UNK
  5. ATORVASTATIN [Concomitant]
     Dosage: 80 MG, UNK
  6. LANOXIN [Concomitant]
     Dosage: 0.63 MG, UNK
  7. FERROUS SULFATE [Concomitant]
     Dosage: 300 MG, UNK
  8. LANSOPRAZOLE [Concomitant]
     Dosage: 30 MG, UNK
  9. DOCUSATE SODIUM [Concomitant]
     Dosage: 100 MG, UNK
  10. FUROSEMIDE [Concomitant]
     Dosage: 80 MG, 2X/DAY
  11. ASPIRIN [Concomitant]
     Dosage: 80 MG, UNK
  12. SPIRONOLACTONE [Concomitant]
     Dosage: 25 MG, UNK
  13. AMLODIPINE [Concomitant]
     Dosage: 10 MG, UNK
  14. WARFARIN [Concomitant]
     Dosage: 2.5 MG, UNK

REACTIONS (1)
  - EYELID OEDEMA [None]
